FAERS Safety Report 7901314-0 (Version None)
Quarter: 2011Q4

REPORT INFORMATION
  Report Type: 
  Country: None (occurrence: None)
  Receive Date: 20111108
  Receipt Date: 20111103
  Transmission Date: 20120403
  Serious: Yes (Death)
  Sender: FDA-Public Use
  Company Number: PHHY2011BR097741

PATIENT
  Sex: Male

DRUGS (2)
  1. FORMOTEROL FUMARATE [Suspect]
     Dosage: 12/200 MCG, UNK
  2. FORMOTEROL FUMARATE [Suspect]
     Dosage: 12/400 MCG, UNK

REACTIONS (1)
  - DEATH [None]
